FAERS Safety Report 13575487 (Version 1)
Quarter: 2017Q2

REPORT INFORMATION
  Report Type: Report from Study
  Country: None (occurrence: US)
  Receive Date: 20170524
  Receipt Date: 20170524
  Transmission Date: 20170830
  Serious: Yes (Hospitalization, Other)
  Sender: FDA-Public Use
  Company Number: US-ABBVIE-17K-163-1927256-00

PATIENT
  Age: 52 Year
  Sex: Female

DRUGS (1)
  1. HUMIRA [Suspect]
     Active Substance: ADALIMUMAB
     Indication: RHEUMATOID ARTHRITIS
     Route: 058
     Dates: start: 20170123, end: 20170320

REACTIONS (7)
  - Pneumonia pneumococcal [Not Recovered/Not Resolved]
  - Lung disorder [Recovered/Resolved]
  - Lower respiratory tract infection [Not Recovered/Not Resolved]
  - Disorientation [Recovered/Resolved]
  - Influenza [Unknown]
  - Nausea [Unknown]
  - Lower respiratory tract infection bacterial [Unknown]

NARRATIVE: CASE EVENT DATE: 2017
